FAERS Safety Report 5639607-2 (Version None)
Quarter: 2008Q1

REPORT INFORMATION
  Report Type: 
  Country: None (occurrence: None)
  Receive Date: 20080131
  Receipt Date: 20071106
  Transmission Date: 20080703
  Serious: Yes (Other)
  Sender: FDA-Public Use
  Company Number: 163-21880-07110473

PATIENT
  Age: 66 Year
  Sex: Female

DRUGS (3)
  1. REVLIMID [Suspect]
     Indication: MULTIPLE MYELOMA
     Dosage: 25 MG, EVERY DAY FOR 21 DAYS, ORAL; 25 MG X 21 DAYS ORAL
     Route: 048
     Dates: start: 20071010
  2. REVLIMID [Suspect]
     Indication: MULTIPLE MYELOMA
     Dosage: 25 MG, EVERY DAY FOR 21 DAYS, ORAL; 25 MG X 21 DAYS ORAL
     Route: 048
     Dates: start: 20071106
  3. COUMADIN [Concomitant]

REACTIONS (2)
  - DEEP VEIN THROMBOSIS [None]
  - PULMONARY EMBOLISM [None]
